FAERS Safety Report 24391717 (Version 1)
Quarter: 2024Q4

REPORT INFORMATION
  Report Type: Spontaneous
  Country: FR (occurrence: FR)
  Receive Date: 20241003
  Receipt Date: 20241003
  Transmission Date: 20250114
  Serious: Yes (Disabling, Other)
  Sender: SANOFI AVENTIS
  Company Number: None

PATIENT
  Age: 67 Year
  Sex: Male

DRUGS (3)
  1. LOVENOX [Suspect]
     Active Substance: ENOXAPARIN SODIUM
     Indication: Haemodialysis
     Dosage: 1 DF, QD
     Route: 010
     Dates: start: 20240731, end: 20240731
  2. KARDEGIC [Suspect]
     Active Substance: ASPIRIN DL-LYSINE
     Indication: Cardiovascular event prophylaxis
     Dosage: 1 DF, QD
     Route: 048
     Dates: start: 202405
  3. PRASUGREL [Suspect]
     Active Substance: PRASUGREL
     Indication: Cardiovascular event prophylaxis
     Dosage: 1 DF, QD (10 MG)
     Route: 048
     Dates: start: 202405, end: 20240802

REACTIONS (2)
  - Monoplegia [Not Recovered/Not Resolved]
  - Haematoma muscle [Not Recovered/Not Resolved]

NARRATIVE: CASE EVENT DATE: 20240802
